FAERS Safety Report 18668399 (Version 1)
Quarter: 2020Q4

REPORT INFORMATION
  Report Type: Spontaneous
  Country: US (occurrence: US)
  Receive Date: 20201227
  Receipt Date: 20201227
  Transmission Date: 20210114
  Serious: Yes (Other)
  Sender: FDA-Public Use
  Company Number: None

PATIENT
  Age: 52 Year
  Sex: Female
  Weight: 123.4 kg

DRUGS (1)
  1. CASIRIVIMAB/IMDEVIMAB (REGN-COV2) [Suspect]
     Active Substance: CASIRIVIMAB\IMDEVIMAB
     Indication: COVID-19
     Route: 041
     Dates: start: 20201224, end: 20201224

REACTIONS (1)
  - Rash erythematous [None]

NARRATIVE: CASE EVENT DATE: 20201224
